FAERS Safety Report 15010194 (Version 4)
Quarter: 2018Q4

REPORT INFORMATION
  Report Type: Spontaneous
  Country: US (occurrence: US)
  Receive Date: 20180614
  Receipt Date: 20181005
  Transmission Date: 20190204
  Serious: Yes (Hospitalization, Other)
  Sender: FDA-Public Use
  Company Number: US-RECKITT BENCKISER HEALTHCARE INT LIMITED-RB-87271-2018

PATIENT
  Age: 56 Year
  Sex: Male
  Weight: 110.2 kg

DRUGS (6)
  1. BACTRIM DS [Suspect]
     Active Substance: SULFAMETHOXAZOLE\TRIMETHOPRIM
     Indication: PRODUCT USED FOR UNKNOWN INDICATION
     Dosage: 1 DOSAGE FORM, BID
     Route: 048
     Dates: start: 20180607
  2. MUCINEX DM MAXIMUM STRENGTH [Suspect]
     Active Substance: DEXTROMETHORPHAN HYDROBROMIDE\GUAIFENESIN
     Indication: COUGH
  3. MUCINEX DM MAXIMUM STRENGTH [Suspect]
     Active Substance: DEXTROMETHORPHAN HYDROBROMIDE\GUAIFENESIN
     Indication: SINUSITIS
  4. PRILOSEC [Suspect]
     Active Substance: OMEPRAZOLE MAGNESIUM
     Indication: PRODUCT USED FOR UNKNOWN INDICATION
     Dosage: 1 DOSAGE FORM
     Route: 048
     Dates: start: 20180412
  5. DESYREL [Suspect]
     Active Substance: TRAZODONE HYDROCHLORIDE
     Indication: PRODUCT USED FOR UNKNOWN INDICATION
     Dosage: 50 MILLIGRAM, QD, NIGHTLY
     Route: 048
     Dates: start: 20180501
  6. MUCINEX DM MAXIMUM STRENGTH [Suspect]
     Active Substance: DEXTROMETHORPHAN HYDROBROMIDE\GUAIFENESIN
     Indication: NASOPHARYNGITIS
     Dosage: 1200 MG, SINGLE
     Route: 065
     Dates: start: 20180607

REACTIONS (31)
  - Hypoaesthesia [Not Recovered/Not Resolved]
  - Feeling drunk [Recovered/Resolved]
  - Hypoaesthesia oral [Unknown]
  - Ligament sprain [Unknown]
  - Thrombophlebitis superficial [Unknown]
  - Dizziness [Recovered/Resolved]
  - Chills [Recovered/Resolved]
  - Face injury [Recovering/Resolving]
  - Fall [Recovered/Resolved]
  - Contusion [Recovered/Resolved]
  - Hypoaesthesia [Unknown]
  - Induration [Unknown]
  - Dyspnoea [Unknown]
  - Erythema [Unknown]
  - Vomiting [Recovered/Resolved]
  - Fracture [Unknown]
  - Skin laceration [Unknown]
  - Pulmonary embolism [Unknown]
  - Tremor [Recovered/Resolved]
  - Facial bones fracture [Unknown]
  - Ecchymosis [Unknown]
  - Tenderness [Unknown]
  - Periorbital swelling [Unknown]
  - Flushing [Unknown]
  - Loss of consciousness [Recovered/Resolved]
  - Nausea [Recovered/Resolved]
  - Pain in extremity [Unknown]
  - Condition aggravated [Unknown]
  - Deep vein thrombosis [Unknown]
  - Syncope [Unknown]
  - Adverse drug reaction [Unknown]

NARRATIVE: CASE EVENT DATE: 201806
